FAERS Safety Report 19980519 (Version 10)
Quarter: 2023Q1

REPORT INFORMATION
  Report Type: Report from Study
  Country: CA (occurrence: CA)
  Receive Date: 20211021
  Receipt Date: 20230202
  Transmission Date: 20230417
  Serious: Yes (Hospitalization, Other)
  Sender: FDA-Public Use
  Company Number: CA-TAKEDA-2021TUS039018

PATIENT
  Age: 79 Year
  Sex: Female

DRUGS (10)
  1. VEDOLIZUMAB [Suspect]
     Active Substance: VEDOLIZUMAB
     Indication: Colitis ulcerative
     Dosage: 300 MILLIGRAM
     Route: 042
     Dates: start: 20210308
  2. VEDOLIZUMAB [Suspect]
     Active Substance: VEDOLIZUMAB
     Dosage: 300 MILLIGRAM
     Route: 042
  3. VEDOLIZUMAB [Suspect]
     Active Substance: VEDOLIZUMAB
     Dosage: 300 MILLIGRAM
     Route: 042
  4. VEDOLIZUMAB [Suspect]
     Active Substance: VEDOLIZUMAB
     Dosage: 300 MILLIGRAM
     Route: 042
  5. VEDOLIZUMAB [Suspect]
     Active Substance: VEDOLIZUMAB
     Dosage: 300 MILLIGRAM
     Route: 042
  6. BISOPROLOL [Concomitant]
     Active Substance: BISOPROLOL
     Dosage: 10 MILLIGRAM
     Route: 048
  7. ROSUVASTATIN [Concomitant]
     Active Substance: ROSUVASTATIN
     Dosage: 2 MILLIGRAM
     Route: 048
  8. PANTOPRAZOLE [Concomitant]
     Active Substance: PANTOPRAZOLE
     Dosage: 40 MILLIGRAM
     Route: 048
  9. ASPIRIN [Concomitant]
     Active Substance: ASPIRIN
     Dosage: 81 MILLIGRAM
     Route: 048
  10. NITROGLYCERIN [Concomitant]
     Active Substance: NITROGLYCERIN
     Dosage: UNK

REACTIONS (13)
  - Stoma complication [Unknown]
  - Procedural pain [Unknown]
  - Postoperative abscess [Recovered/Resolved]
  - Syncope [Unknown]
  - Abdominal pain [Unknown]
  - Hernia [Unknown]
  - Gastroenteritis viral [Recovered/Resolved]
  - Tonsillar disorder [Unknown]
  - Gastrooesophageal reflux disease [Unknown]
  - Gastrointestinal stoma output increased [Unknown]
  - Diarrhoea [Unknown]
  - Pharyngitis streptococcal [Recovering/Resolving]
  - Vomiting [Unknown]

NARRATIVE: CASE EVENT DATE: 20210522
